FAERS Safety Report 6315255-6 (Version None)
Quarter: 2009Q3

REPORT INFORMATION
  Report Type: 
  Country: None (occurrence: None)
  Receive Date: 20090819
  Receipt Date: 20090811
  Transmission Date: 20100115
  Serious: Yes (Life-Threatening, Other)
  Sender: FDA-Public Use
  Company Number: PHEH2009US09311

PATIENT
  Sex: Male

DRUGS (3)
  1. ZOMETA [Suspect]
     Dosage: UNK, UNK
     Dates: start: 20060701
  2. PREDNISONE [Suspect]
     Dosage: UNK, UNK
  3. FOSAMAX [Suspect]
     Dosage: UNK, UNK

REACTIONS (3)
  - FAILURE OF IMPLANT [None]
  - FEELING ABNORMAL [None]
  - IMPLANT SITE INFECTION [None]
